FAERS Safety Report 8746926 (Version 2)
Quarter: 2012Q4

REPORT INFORMATION
  Report Type: 
  Country: SE (occurrence: SE)
  Receive Date: 20120827
  Receipt Date: 20120829
  Transmission Date: 20130627
  Serious: Yes (Other)
  Sender: FDA-Public Use
  Company Number: PHHY2012SE073343

PATIENT
  Sex: Female

DRUGS (3)
  1. VOLTAREN [Suspect]
     Indication: ARTHRITIS
     Dosage: 1 DF, per day in the evening
     Route: 048
  2. ENALAPRIL [Concomitant]
  3. OMEPRAZOLE [Concomitant]
     Indication: GASTROINTESTINAL DISORDER
     Dosage: 20 mg, in the evening

REACTIONS (5)
  - Gastrointestinal disorder [Unknown]
  - Gastrointestinal haemorrhage [Recovering/Resolving]
  - Hepatic enzyme increased [Unknown]
  - Insomnia [Unknown]
  - Rash [Unknown]
